FAERS Safety Report 6197446-0 (Version None)
Quarter: 2009Q2

REPORT INFORMATION
  Report Type: 
  Country: None (occurrence: None)
  Receive Date: 20090521
  Receipt Date: 20090209
  Transmission Date: 20091009
  Serious: No
  Sender: FDA-Public Use
  Company Number: US-TEVA-183430USA

PATIENT
  Sex: Female

DRUGS (13)
  1. AZILECT [Suspect]
  2. SINEMET [Concomitant]
     Dosage: 25/100
  3. FENTANYL [Concomitant]
     Route: 062
  4. BACLOFEN [Concomitant]
  5. DIAZEPAM [Concomitant]
  6. CEFADROXIL [Concomitant]
  7. CYCLOBENZAPRINE HCL [Concomitant]
  8. PREDNISONE [Concomitant]
  9. ONDANSETRON [Concomitant]
  10. LEVOTHYROXINE SODIUM [Concomitant]
  11. PRAMIPEXOLE DIHYDROCHLORIDE [Concomitant]
  12. LANSOPRAZOLE [Concomitant]
  13. METOCLOPRAMIDE [Concomitant]

REACTIONS (6)
  - CONFUSIONAL STATE [None]
  - HALLUCINATION [None]
  - IMMOBILISATION PROLONGED [None]
  - INCONTINENCE [None]
  - MEMORY IMPAIRMENT [None]
  - PAIN [None]
